FAERS Safety Report 5119165-1 (Version None)
Quarter: 2006Q3

REPORT INFORMATION
  Report Type: 
  Country: None (occurrence: None)
  Receive Date: 20060929
  Receipt Date: 20060929
  Transmission Date: 20061208
  Serious: Yes (Hospitalization)
  Sender: FDA-Public Use
  Company Number: None

PATIENT
  Age: 33 Year
  Sex: Female
  Weight: 94.3482 kg

DRUGS (6)
  1. INTRAVENOUS TREPROSTINIL [Suspect]
     Indication: ATRIAL SEPTAL DEFECT
     Dosage: 66 NG/KG/MIN  IV
     Route: 042
  2. INTRAVENOUS TREPROSTINIL [Suspect]
     Indication: PULMONARY HYPERTENSION
     Dosage: 66 NG/KG/MIN  IV
     Route: 042
  3. IMODIUM [Concomitant]
  4. DILTIAZEM HCL [Concomitant]
  5. WARFARIN SODIUM [Concomitant]
  6. VANCOMYCIN [Concomitant]

REACTIONS (10)
  - CATHETER SITE ERYTHEMA [None]
  - CATHETER SITE INFECTION [None]
  - CATHETER SITE PAIN [None]
  - CATHETER SITE RELATED REACTION [None]
  - FLUCTUANCE [None]
  - INFECTION [None]
  - PURULENT DISCHARGE [None]
  - PYREXIA [None]
  - SKIN WARM [None]
  - SWELLING [None]
